FAERS Safety Report 6585926-5 (Version None)
Quarter: 2010Q1

REPORT INFORMATION
  Report Type: 
  Country: None (occurrence: None)
  Receive Date: 20100217
  Receipt Date: 20100210
  Transmission Date: 20100710
  Serious: Yes (Death)
  Sender: FDA-Public Use
  Company Number: US-GILEAD-2010-0027031

PATIENT
  Sex: Female

DRUGS (11)
  1. LETAIRIS [Suspect]
     Indication: PULMONARY ARTERIAL HYPERTENSION
     Route: 048
     Dates: start: 20090911, end: 20100108
  2. ENALAPRIL MALEATE [Concomitant]
  3. SULAR [Concomitant]
  4. FUROSEMIDE [Concomitant]
  5. PREVACID [Concomitant]
  6. IMODIUM A-D [Concomitant]
  7. KLOR-CON [Concomitant]
  8. MULITIVITAMIN FOR HER [Concomitant]
  9. VITAMIN B COMPLEX CAP [Concomitant]
  10. FERROUS SULFATE TAB [Concomitant]
  11. FOLIC ACID [Concomitant]

REACTIONS (1)
  - DEATH [None]
